FAERS Safety Report 6922776-1 (Version None)
Quarter: 2010Q3

REPORT INFORMATION
  Report Type: 
  Country: None (occurrence: None)
  Receive Date: 20100811
  Receipt Date: 20100802
  Transmission Date: 20110219
  Serious: Yes (Hospitalization)
  Sender: FDA-Public Use
  Company Number: CIP10001863

PATIENT
  Age: 78 Year
  Sex: Female

DRUGS (1)
  1. ASACOL [Suspect]
     Dosage: , ORAL
     Route: 048

REACTIONS (2)
  - ECONOMIC PROBLEM [None]
  - THERAPY REGIMEN CHANGED [None]
